FAERS Safety Report 4759874-7 (Version None)
Quarter: 2005Q3

REPORT INFORMATION
  Report Type: 
  Country: None (occurrence: None)
  Receive Date: 20050902
  Receipt Date: 20050830
  Transmission Date: 20060218
  Serious: Yes (Hospitalization, Disabling)
  Sender: FDA-Public Use
  Company Number: US-BOEHRINGER INGELHEIM PHARMACEUTICALS, INC.-2005-BP-15210BP

PATIENT
  Sex: Female

DRUGS (11)
  1. SPIRIVA [Suspect]
     Indication: EMPHYSEMA
     Route: 055
     Dates: start: 20050101, end: 20050820
  2. SPIRIVA [Suspect]
     Indication: CHRONIC OBSTRUCTIVE PULMONARY DISEASE
  3. DILTIAZEM [Concomitant]
     Route: 048
  4. SYNTHROID [Concomitant]
     Route: 048
  5. LOVASTATIN [Concomitant]
     Route: 048
  6. PRILOSEC [Concomitant]
     Route: 048
  7. LASIX [Concomitant]
     Route: 048
  8. PAXIL [Concomitant]
     Route: 048
  9. ATIVAN [Concomitant]
     Route: 048
  10. FOSAMAX [Concomitant]
     Route: 048
  11. ALBUTEROL [Concomitant]
     Route: 055

REACTIONS (8)
  - BLINDNESS [None]
  - CHRONIC OBSTRUCTIVE PULMONARY DISEASE [None]
  - CONSTIPATION [None]
  - DRY MOUTH [None]
  - FAILURE OF IMPLANT [None]
  - GINGIVAL ATROPHY [None]
  - HEART RATE INCREASED [None]
  - VISION BLURRED [None]
